FAERS Safety Report 4466967-0 (Version None)
Quarter: 2004Q4

REPORT INFORMATION
  Report Type: 
  Country: None (occurrence: None)
  Receive Date: 20041001
  Receipt Date: 20031224
  Transmission Date: 20050328
  Serious: Yes (Hospitalization)
  Sender: FDA-Public Use
  Company Number: 7086

PATIENT
  Age: 61 Year
  Sex: Male

DRUGS (6)
  1. METHOTREXATE [Suspect]
     Indication: RHEUMATOID ARTHRITIS
     Dosage: 10 MG WEEK PO
     Route: 048
     Dates: start: 19990402, end: 20030627
  2. ENBREL [Suspect]
     Indication: RHEUMATOID ARTHRITIS
     Dosage: 25 MG 2/WK SC
     Route: 058
     Dates: start: 20021118, end: 20030606
  3. CISPLATIN [Suspect]
     Indication: SQUAMOUS CELL CARCINOMA
  4. FLUOROURACIL [Suspect]
     Indication: SQUAMOUS CELL CARCINOMA
  5. VIOXX [Concomitant]
  6. DARVOCET-N 100 [Concomitant]

REACTIONS (23)
  - BLOOD GLUCOSE INCREASED [None]
  - CHILLS [None]
  - HAEMATOCRIT DECREASED [None]
  - HAEMOGLOBIN DECREASED [None]
  - LABORATORY TEST ABNORMAL [None]
  - LUNG DISORDER [None]
  - LYMPHADENOPATHY [None]
  - LYMPHOMA [None]
  - MONOCYTE PERCENTAGE INCREASED [None]
  - MUCOSAL INFLAMMATION [None]
  - NAUSEA [None]
  - NECK MASS [None]
  - NECROSIS [None]
  - NEUTROPENIA [None]
  - PLATELET COUNT DECREASED [None]
  - POIKILOCYTOSIS [None]
  - POSITRON EMISSION TOMOGRAM ABNORMAL [None]
  - PROTEIN TOTAL DECREASED [None]
  - PYREXIA [None]
  - RED BLOOD CELL COUNT DECREASED [None]
  - SQUAMOUS CELL CARCINOMA [None]
  - VOMITING [None]
  - WHITE BLOOD CELL COUNT DECREASED [None]
